FAERS Safety Report 9607646 (Version 1)
Quarter: 2013Q4

REPORT INFORMATION
  Report Type: Spontaneous
  Country: US (occurrence: None)
  Receive Date: 20131007
  Receipt Date: 20131007
  Transmission Date: 20140711
  Serious: Yes (Life-Threatening, Disabling)
  Sender: FDA-Public Use
  Company Number: None

PATIENT
  Age: 31 Year
  Sex: Female
  Weight: 58.97 kg

DRUGS (1)
  1. DOXYCYCLINE [Suspect]
     Dosage: 1, THREE TIMES DAILY, TAKEN BY MOUTH
     Route: 048

REACTIONS (3)
  - Photosensitivity reaction [None]
  - Gastrooesophageal reflux disease [None]
  - Eye injury [None]
